FAERS Safety Report 8792949 (Version 1)
Quarter: 2012Q4

REPORT INFORMATION
  Report Type: 
  Country: US (occurrence: US)
  Receive Date: 20120918
  Receipt Date: 20120918
  Transmission Date: 20130627
  Serious: Yes (Other)
  Sender: FDA-Public Use
  Company Number: US-009507513-1203USA01356

PATIENT

DRUGS (6)
  1. FOSAMAX [Suspect]
     Indication: OSTEOPOROSIS
     Dosage: 70 mg, qw
     Route: 048
     Dates: start: 1998, end: 200409
  2. FOSAMAX [Suspect]
     Indication: OSTEOPENIA
  3. ALENDRONATE SODIUM [Suspect]
     Indication: OSTEOPOROSIS
     Dosage: 70 mg, qw
     Route: 048
     Dates: start: 200904, end: 20100608
  4. ACTONEL [Suspect]
     Indication: OSTEOPOROSIS
     Dosage: 35 mg, UNK
     Route: 048
     Dates: start: 200409, end: 200904
  5. ALENDRONATE SODIUM [Suspect]
     Indication: OSTEOPOROSIS
     Dosage: 70 mg, qw
     Route: 048
     Dates: start: 20100921, end: 20110307
  6. FOSAMAX [Suspect]
     Indication: OSTEOPOROSIS
     Dosage: 70 mg, qw
     Dates: start: 20100312

REACTIONS (22)
  - Muscle injury [Unknown]
  - Low turnover osteopathy [Unknown]
  - Gait disturbance [Unknown]
  - Tooth extraction [Unknown]
  - Hypertension [Unknown]
  - Blood cholesterol increased [Unknown]
  - Arthritis [Unknown]
  - Muscular weakness [Unknown]
  - Pain in extremity [Unknown]
  - Renal cyst [Unknown]
  - Radiculopathy [Unknown]
  - Haemangioma [Unknown]
  - Fall [Unknown]
  - Intervertebral disc protrusion [Unknown]
  - Intervertebral disc protrusion [Unknown]
  - Muscle strain [Unknown]
  - Back pain [Unknown]
  - Arthralgia [Unknown]
  - Open reduction of fracture [Unknown]
  - Femur fracture [Unknown]
  - Femur fracture [Unknown]
  - Peroneal nerve palsy [Recovering/Resolving]
